FAERS Safety Report 6701664-X (Version None)
Quarter: 2010Q2

REPORT INFORMATION
  Report Type: 
  Country: None (occurrence: None)
  Receive Date: 20100429
  Receipt Date: 20100420
  Transmission Date: 20101027
  Serious: Yes (Death)
  Sender: FDA-Public Use
  Company Number: US-SANOFI-AVENTIS-2009SA002693

PATIENT
  Age: 81 Year
  Sex: Male

DRUGS (9)
  1. MULTAQ [Suspect]
     Indication: ATRIAL TACHYCARDIA
     Route: 048
     Dates: start: 20091112
  2. MULTAQ [Suspect]
     Route: 048
     Dates: start: 20091112
  3. TOPROL-XL [Concomitant]
  4. AMLODIPINE [Concomitant]
  5. LASIX [Concomitant]
  6. VANCOMYCIN [Concomitant]
     Dates: start: 20091113
  7. CIPROFLOXACIN [Concomitant]
     Dates: start: 20091113
  8. AZTREONAM [Concomitant]
     Dates: start: 20091113
  9. ALL OTHER THERAPEUTIC PRODUCTS [Concomitant]

REACTIONS (7)
  - CARDIAC FAILURE [None]
  - COAGULOPATHY [None]
  - HYPOPERFUSION [None]
  - HYPOTENSION [None]
  - INTESTINAL INFARCTION [None]
  - LEUKOCYTOSIS [None]
  - RENAL FAILURE [None]
